FAERS Safety Report 20949548 (Version 1)
Quarter: 2022Q2

REPORT INFORMATION
  Report Type: Spontaneous
  Country: US (occurrence: US)
  Receive Date: 20220613
  Receipt Date: 20220613
  Transmission Date: 20220720
  Serious: No
  Sender: FDA-Public Use
  Company Number: US-AMGEN-USASP2022096551

PATIENT
  Sex: Male

DRUGS (4)
  1. XGEVA [Suspect]
     Active Substance: DENOSUMAB
     Indication: Bone cancer
     Dosage: 120 MILLIGRAM, QMO
     Route: 065
     Dates: start: 20200901
  2. XGEVA [Suspect]
     Active Substance: DENOSUMAB
     Indication: Prostate cancer
  3. XGEVA [Suspect]
     Active Substance: DENOSUMAB
     Indication: Anaemia
  4. ERLEADA [Concomitant]
     Active Substance: APALUTAMIDE

REACTIONS (1)
  - Tooth extraction [Unknown]
